FAERS Safety Report 8810644 (Version 1)
Quarter: 2012Q4

REPORT INFORMATION
  Report Type: Spontaneous
  Country: US (occurrence: None)
  Receive Date: 20120920
  Receipt Date: 20120920
  Transmission Date: 20130627
  Serious: Yes (Other)
  Sender: FDA-Public Use
  Company Number: 16970964

PATIENT
  Sex: Male
  Weight: 72.56 kg

DRUGS (1)
  1. YERVOY [Suspect]
     Indication: MALIGNANT MELANOMA
     Dates: start: 20120810

REACTIONS (4)
  - Weight decreased [None]
  - Lymphadenopathy [None]
  - Lymph node pain [None]
  - Metastases to skin [None]
